FAERS Safety Report 6695949-3 (Version None)
Quarter: 2010Q2

REPORT INFORMATION
  Report Type: 
  Country: None (occurrence: None)
  Receive Date: 20100422
  Receipt Date: 20100422
  Transmission Date: 20101027
  Serious: Yes (Life-Threatening, Disabling)
  Sender: FDA-Public Use
  Company Number: None

PATIENT
  Sex: Male
  Weight: 55.5 kg

DRUGS (6)
  1. VIDEX [Suspect]
     Indication: HIV INFECTION
     Dosage: 250MG ONCE DAILY ORALLY
     Route: 048
     Dates: start: 20040101, end: 20090101
  2. TENOFOVIR [Concomitant]
  3. EFAVIRENZ [Concomitant]
  4. STAVUDINE [Concomitant]
  5. NELFINAVIR MESYLATE [Concomitant]
  6. LAMIVUDINE [Concomitant]

REACTIONS (8)
  - ASCITES [None]
  - BLOOD ALBUMIN DECREASED [None]
  - HEPATIC ENZYME INCREASED [None]
  - HEPATOTOXICITY [None]
  - PLEURAL EFFUSION [None]
  - PORTAL VEIN THROMBOSIS [None]
  - VARICOSE VEIN [None]
  - VASODILATATION [None]
